FAERS Safety Report 24819779 (Version 1)
Quarter: 2025Q1

REPORT INFORMATION
  Report Type: Spontaneous
  Country: SE (occurrence: SE)
  Receive Date: 20250108
  Receipt Date: 20250108
  Transmission Date: 20250408
  Serious: Yes (Life-Threatening)
  Sender: TEVA
  Company Number: None

PATIENT
  Age: 55 Year
  Sex: Female

DRUGS (3)
  1. OMEPRAZOLE [Suspect]
     Active Substance: OMEPRAZOLE
     Indication: Dyspepsia
     Route: 065
  2. PARAFLEX [Suspect]
     Active Substance: CHLORZOXAZONE
     Indication: Groin pain
     Route: 065
  3. NAPROXEN [Suspect]
     Active Substance: NAPROXEN
     Indication: Groin pain
     Route: 065

REACTIONS (6)
  - Hyperhidrosis [Recovering/Resolving]
  - Fatigue [Recovering/Resolving]
  - Gingival erosion [Recovering/Resolving]
  - Chest pain [Recovering/Resolving]
  - Haematemesis [Recovering/Resolving]
  - Suffocation feeling [Recovering/Resolving]

NARRATIVE: CASE EVENT DATE: 20241101
